FAERS Safety Report 7293575-9 (Version None)
Quarter: 2011Q1

REPORT INFORMATION
  Report Type: 
  Country: None (occurrence: None)
  Receive Date: 20110215
  Receipt Date: 20110211
  Transmission Date: 20110831
  Serious: Yes (Hospitalization)
  Sender: FDA-Public Use
  Company Number: CA-PFIZER INC-2011032021

PATIENT
  Age: 45 Year
  Sex: Female
  Weight: 68.03 kg

DRUGS (4)
  1. LYRICA [Suspect]
     Indication: COMPLEX REGIONAL PAIN SYNDROME
     Dosage: 225 MG, 2X/DAY
     Route: 048
     Dates: start: 20090501
  2. SYMBICORT [Concomitant]
     Indication: ASTHMA
     Dosage: 200/6 UG, UNK
  3. NEXIUM [Concomitant]
     Indication: REFLUX GASTRITIS
     Dosage: 40 MG, 1X/DAY
  4. FLOVENT [Concomitant]
     Indication: ASTHMA
     Dosage: 125 UG, UNK

REACTIONS (1)
  - MYOCARDIAL INFARCTION [None]
